FAERS Safety Report 6271461-0 (Version None)
Quarter: 2009Q3

REPORT INFORMATION
  Report Type: 
  Country: None (occurrence: None)
  Receive Date: 20090717
  Receipt Date: 20090707
  Transmission Date: 20100115
  Serious: Yes (Other)
  Sender: FDA-Public Use
  Company Number: PHEH2009US07164

PATIENT
  Sex: Female

DRUGS (2)
  1. FEMARA [Suspect]
     Dosage: UNK
     Dates: start: 20090201
  2. FEMARA [Suspect]
     Dosage: UNK

REACTIONS (3)
  - BONE PAIN [None]
  - DEPRESSION SUICIDAL [None]
  - OEDEMA PERIPHERAL [None]
